FAERS Safety Report 6552767-4 (Version None)
Quarter: 2010Q1

REPORT INFORMATION
  Report Type: 
  Country: None (occurrence: None)
  Receive Date: 20100126
  Receipt Date: 20100119
  Transmission Date: 20100710
  Serious: Yes (Death)
  Sender: FDA-Public Use
  Company Number: US-GILEAD-2010-0026553

PATIENT
  Sex: Female
  Weight: 53.572 kg

DRUGS (14)
  1. LETAIRIS [Suspect]
     Indication: PULMONARY ARTERIAL HYPERTENSION
     Route: 048
     Dates: start: 20090817
  2. FUROSEMIDE [Concomitant]
  3. COREG [Concomitant]
  4. LISINOPRIL [Concomitant]
  5. ASPIRIN [Concomitant]
  6. SYMBICORT [Concomitant]
  7. COLCHICINE [Concomitant]
  8. CELEBREX [Concomitant]
  9. PREDNISONE [Concomitant]
  10. POTASSIUM CHLORIDE [Concomitant]
  11. PLAQUENIL [Concomitant]
  12. TRAMADOL HCL-APAP [Concomitant]
  13. VITAMIN D [Concomitant]
  14. PRILOSEC [Concomitant]

REACTIONS (1)
  - DEATH [None]
